FAERS Safety Report 6568133-1 (Version None)
Quarter: 2010Q1

REPORT INFORMATION
  Report Type: 
  Country: None (occurrence: None)
  Receive Date: 20100203
  Receipt Date: 20100122
  Transmission Date: 20100710
  Serious: Yes (Other)
  Sender: FDA-Public Use
  Company Number: GT-BAYER-201010947LA

PATIENT
  Age: 35 Year
  Sex: Female
  Weight: 57 kg

DRUGS (1)
  1. YASMIN [Suspect]
     Indication: DRUG USE FOR UNKNOWN INDICATION
     Route: 048

REACTIONS (2)
  - CHOLECYSTECTOMY [None]
  - CHOLELITHIASIS [None]
